FAERS Safety Report 15866665 (Version 1)
Quarter: 2019Q1

REPORT INFORMATION
  Report Type: Spontaneous
  Country: JP (occurrence: JP)
  Receive Date: 20190125
  Receipt Date: 20190125
  Transmission Date: 20190417
  Serious: Yes (Hospitalization)
  Sender: FDA-Public Use
  Company Number: JP-TEVA-2019-JP-1004843

PATIENT
  Age: 84 Year
  Sex: Female

DRUGS (21)
  1. CARVEDILOL. [Concomitant]
     Active Substance: CARVEDILOL
  2. CANDESARTAN CILEXETIL. [Concomitant]
     Active Substance: CANDESARTAN CILEXETIL
  3. BROTIZOLAM [Concomitant]
     Active Substance: BROTIZOLAM
  4. RIVAROXABAN [Concomitant]
     Active Substance: RIVAROXABAN
  5. MAGNESIUM OXIDE. [Concomitant]
     Active Substance: MAGNESIUM OXIDE
  6. ETIZOLAM [Concomitant]
     Active Substance: ETIZOLAM
  7. ACETYLSALICYLIC ACID [Concomitant]
     Active Substance: ASPIRIN
  8. ESZOPICLONE. [Concomitant]
     Active Substance: ESZOPICLONE
  9. AMLODIPINE BESILATE [Concomitant]
     Active Substance: AMLODIPINE BESYLATE
  10. FUROSEMIDE. [Concomitant]
     Active Substance: FUROSEMIDE
  11. VOGLIBOSE [Concomitant]
     Active Substance: VOGLIBOSE
  12. SULPIRIDE [Concomitant]
     Active Substance: SULPIRIDE
  13. REBAMIPIDE [Concomitant]
     Active Substance: REBAMIPIDE
  14. GLIMEPIRIDE. [Concomitant]
     Active Substance: GLIMEPIRIDE
  15. CALCIUM L-ASPARTATE [Concomitant]
  16. RABEPRAZOLE SODIUM. [Concomitant]
     Active Substance: RABEPRAZOLE SODIUM
  17. RISEDRONATE SODIUM. [Suspect]
     Active Substance: RISEDRONATE SODIUM
     Indication: PRODUCT USED FOR UNKNOWN INDICATION
     Route: 065
  18. SPIRONOLACTONE. [Concomitant]
     Active Substance: SPIRONOLACTONE
  19. METFORMIN HYDROCHLORIDE. [Concomitant]
     Active Substance: METFORMIN HYDROCHLORIDE
  20. ELDECALCITOL [Concomitant]
     Active Substance: ELDECALCITOL
  21. ASPARTATE CALCIUM [Concomitant]
     Active Substance: CALCIUM ASPARTATE

REACTIONS (2)
  - Cardiac failure [Unknown]
  - Renal impairment [Unknown]
